FAERS Safety Report 7491844-0 (Version None)
Quarter: 2011Q2

REPORT INFORMATION
  Report Type: 
  Country: None (occurrence: None)
  Receive Date: 20110519
  Receipt Date: 20110513
  Transmission Date: 20111010
  Serious: Yes (Death, Hospitalization)
  Sender: FDA-Public Use
  Company Number: DE-BRISTOL-MYERS SQUIBB COMPANY-15678188

PATIENT
  Age: 63 Year
  Sex: Female
  Weight: 91 kg

DRUGS (3)
  1. CETIRIZINE HCL [Concomitant]
     Dates: start: 20110310, end: 20110331
  2. IPILIMUMAB [Suspect]
     Indication: METASTATIC MALIGNANT MELANOMA
     Dosage: VIAL NO:252095,256797,256796,252086 NO.OF CYCLES:2
     Route: 042
     Dates: start: 20110310, end: 20110331
  3. GRANISETRON HCL [Concomitant]
     Dates: start: 20110310, end: 20110331

REACTIONS (3)
  - NEOPLASM MALIGNANT [None]
  - FATIGUE [None]
  - RENAL FAILURE ACUTE [None]
